FAERS Safety Report 4394275-5 (Version None)
Quarter: 2004Q3

REPORT INFORMATION
  Report Type: 
  Country: None (occurrence: None)
  Receive Date: 20040707
  Receipt Date: 20040621
  Transmission Date: 20050211
  Serious: Yes (Disabling, Other)
  Sender: FDA-Public Use
  Company Number: BIVUS040036

PATIENT
  Age: 58 Year
  Sex: Female
  Weight: 57 kg

DRUGS (1)
  1. ANGIOMAX [Suspect]
     Dosage: TOPICAL
     Route: 061

REACTIONS (13)
  - ACCIDENTAL EXPOSURE [None]
  - BURNING SENSATION [None]
  - CHEILITIS [None]
  - DERMATITIS ALLERGIC [None]
  - DRY SKIN [None]
  - NAIL BED BLEEDING [None]
  - NAIL DISCOLOURATION [None]
  - NASAL CONGESTION [None]
  - ONYCHOMADESIS [None]
  - ONYCHOMYCOSIS [None]
  - PRURITUS [None]
  - SKIN DESQUAMATION [None]
  - SNEEZING [None]
